FAERS Safety Report 4780649-7 (Version None)
Quarter: 2005Q3

REPORT INFORMATION
  Report Type: 
  Country: None (occurrence: None)
  Receive Date: 20050926
  Receipt Date: 20050913
  Transmission Date: 20060218
  Serious: Yes (Death, Hospitalization, Other)
  Sender: FDA-Public Use
  Company Number: 2005130185

PATIENT
  Age: 66 Year
  Sex: Female

DRUGS (2)
  1. BEXTRA [Suspect]
     Indication: ARTHRALGIA
     Dosage: 10 MG (10 MG, 1 IN 1 AS NECESSARY), ORAL
     Route: 048
     Dates: start: 20040317, end: 20040407
  2. CLARITIN-D [Concomitant]
     Indication: HYPERSENSITIVITY
     Dates: end: 20050407

REACTIONS (31)
  - ARM AMPUTATION [None]
  - ARTERIAL THROMBOSIS LIMB [None]
  - BRAIN HERNIATION [None]
  - CHEST PAIN [None]
  - CHILLS [None]
  - COLLAGEN-VASCULAR DISEASE [None]
  - CORNEAL EXFOLIATION [None]
  - CORNEAL THINNING [None]
  - CORNEAL TRANSPLANT [None]
  - CYANOSIS [None]
  - DIPLOPIA [None]
  - DYSPHAGIA [None]
  - DYSPNOEA [None]
  - ECZEMA [None]
  - EYE PENETRATION [None]
  - GANGRENE [None]
  - HYPERSENSITIVITY [None]
  - HYPOTENSION [None]
  - INJURY CORNEAL [None]
  - NECROSIS [None]
  - OCULAR HYPERAEMIA [None]
  - PERIPHERAL COLDNESS [None]
  - PERIPHERAL EMBOLISM [None]
  - PHARYNGEAL OEDEMA [None]
  - PHARYNGOLARYNGEAL PAIN [None]
  - RENAL FAILURE ACUTE [None]
  - STAPHYLOCOCCAL BACTERAEMIA [None]
  - STEVENS-JOHNSON SYNDROME [None]
  - SUBDURAL HAEMATOMA [None]
  - TOXIC EPIDERMAL NECROLYSIS [None]
  - VISION BLURRED [None]
